FAERS Safety Report 15652256 (Version 3)
Quarter: 2019Q1

REPORT INFORMATION
  Report Type: Report from Study
  Country: US (occurrence: US)
  Receive Date: 20181123
  Receipt Date: 20190108
  Transmission Date: 20190417
  Serious: No
  Sender: FDA-Public Use
  Company Number: US-B.I. PHARMACEUTICALS,INC./RIDGEFIELD-2018-BI-056874

PATIENT
  Sex: Male

DRUGS (2)
  1. GILOTRIF [Suspect]
     Active Substance: AFATINIB
     Indication: LUNG NEOPLASM MALIGNANT
     Route: 048
     Dates: start: 20181015
  2. GILOTRIF [Suspect]
     Active Substance: AFATINIB
     Route: 048

REACTIONS (11)
  - Abdominal discomfort [Unknown]
  - Acne [Recovering/Resolving]
  - Off label use [Unknown]
  - Oral pain [Unknown]
  - Tongue dry [Unknown]
  - Decreased appetite [Unknown]
  - Ageusia [Unknown]
  - Diarrhoea [Not Recovered/Not Resolved]
  - Lip erythema [Unknown]
  - Skin irritation [Not Recovered/Not Resolved]
  - Stomatitis [Unknown]
